FAERS Safety Report 4289239-6 (Version None)
Quarter: 2004Q1

REPORT INFORMATION
  Report Type: 
  Country: None (occurrence: None)
  Receive Date: 20040204
  Receipt Date: 20040120
  Transmission Date: 20041129
  Serious: Yes (Other)
  Sender: FDA-Public Use
  Company Number: B0321294A

PATIENT
  Sex: Male

DRUGS (1)
  1. NICODERM CQ [Suspect]
     Indication: EX-SMOKER
     Dosage: 21 MG / TRANSDERMAL
     Route: 062

REACTIONS (4)
  - APPLICATION SITE NODULE [None]
  - ECZEMA [None]
  - PAIN [None]
  - PRURITUS [None]
